FAERS Safety Report 10049450 (Version 3)
Quarter: 2014Q2

REPORT INFORMATION
  Report Type: Spontaneous
  Country: IT (occurrence: IT)
  Receive Date: 20140401
  Receipt Date: 20140409
  Transmission Date: 20141212
  Serious: Yes (Hospitalization)
  Sender: FDA-Public Use
  Company Number: IT-ROCHE-1372336

PATIENT
  Age: 35 Year
  Sex: Female

DRUGS (2)
  1. VALIUM [Suspect]
     Indication: PRODUCT USED FOR UNKNOWN INDICATION
     Route: 048
     Dates: start: 20140209, end: 20140209
  2. RIVOTRIL [Suspect]
     Indication: PRODUCT USED FOR UNKNOWN INDICATION
     Route: 048
     Dates: start: 20140209, end: 20140209

REACTIONS (3)
  - Intentional self-injury [Recovered/Resolved]
  - Drug abuse [Unknown]
  - Sopor [Recovered/Resolved]
